FAERS Safety Report 4653119-4 (Version None)
Quarter: 2005Q2

REPORT INFORMATION
  Report Type: 
  Country: None (occurrence: None)
  Receive Date: 20050502
  Receipt Date: 20050502
  Transmission Date: 20051028
  Serious: Yes (Hospitalization)
  Sender: FDA-Public Use
  Company Number: None

PATIENT
  Age: 68 Year
  Sex: Female
  Weight: 66 kg

DRUGS (2)
  1. VINORELBINE TARTRATE [Suspect]
     Indication: BREAST CANCER METASTATIC
     Dosage: 100 MG   Q DAYS 1 AND 8   ORAL
     Route: 048
     Dates: start: 20031015, end: 20050420
  2. CAPCITABINE [Suspect]
     Indication: BREAST CANCER METASTATIC
     Dosage: 2000MG/M2   Q DAYS 1-14    ORAL
     Route: 048
     Dates: start: 20031015, end: 20050425

REACTIONS (1)
  - ATRIAL FIBRILLATION [None]
